FAERS Safety Report 23805213 (Version 2)
Quarter: 2024Q2

REPORT INFORMATION
  Report Type: Spontaneous
  Country: IT (occurrence: IT)
  Receive Date: 20240502
  Receipt Date: 20240621
  Transmission Date: 20240716
  Serious: Yes (Life-Threatening, Hospitalization, Other)
  Sender: FDA-Public Use
  Company Number: None

PATIENT

DRUGS (5)
  1. MEPOLIZUMAB [Suspect]
     Active Substance: MEPOLIZUMAB
     Indication: Asthma
     Dosage: 1 DF (1 FL PER MONTH. A TOTAL OF 2 DRUG ADMINISTRATIONS WERE CARRIED OUT.)
     Route: 058
     Dates: start: 20231228, end: 20240328
  2. CETIRIZINE [Concomitant]
     Active Substance: CETIRIZINE HYDROCHLORIDE
     Indication: Allergy prophylaxis
     Dosage: 1 DF, QD
     Route: 048
     Dates: start: 20240325, end: 20240422
  3. METHYLPREDNISOLONE [Concomitant]
     Active Substance: METHYLPREDNISOLONE
     Indication: Allergy prophylaxis
     Dosage: 16 MG, QD
     Route: 048
     Dates: start: 20240325, end: 20240422
  4. MONTELUKAST [Concomitant]
     Active Substance: MONTELUKAST SODIUM
     Indication: Asthma
     Dosage: 10 MG, QD
     Route: 048
     Dates: start: 20231228, end: 20240422
  5. BECLOMETHASONE DIPROPIONATE\FORMOTEROL FUMARATE\GLYCOPYRROLATE [Concomitant]
     Active Substance: BECLOMETHASONE DIPROPIONATE\FORMOTEROL FUMARATE\GLYCOPYRROLATE
     Indication: Asthma
     Dosage: 2 DF, QOD
     Route: 055
     Dates: start: 20231228, end: 20240422

REACTIONS (5)
  - Anaphylactic reaction [Recovered/Resolved]
  - Asthmatic crisis [Recovered/Resolved]
  - Angioedema [Recovered/Resolved]
  - Bronchospasm [Recovered/Resolved]
  - Angioedema [Recovered/Resolved]

NARRATIVE: CASE EVENT DATE: 20240328
